FAERS Safety Report 8279587 (Version 3)
Quarter: 2012Q4

REPORT INFORMATION
  Report Type: Spontaneous
  Country: US (occurrence: None)
  Receive Date: 20111201
  Receipt Date: 20121019
  Transmission Date: 20130627
  Serious: Yes (Death, Other)
  Sender: FDA-Public Use
  Company Number: TPA2011A07784

PATIENT
  Age: 75 Year
  Sex: Female
  Weight: 81.65 kg

DRUGS (8)
  1. ACTOS [Suspect]
     Indication: TYPE 2 DIABETES MELLITUS
     Dates: start: 200009, end: 20090710
  2. GLUCOTROL XL (GLIPIZIDE) [Concomitant]
  3. HUMULIN 70/30 (INSULIN HUMAN, INSULIN HUMAN INJECTION, ISOPHANE) [Concomitant]
  4. PRINIVIL (LISINOPRIL DIHYDRATE) [Concomitant]
  5. NORVASC (AMLDOIPINE BESILATE) [Concomitant]
  6. HYDROCHLOROTHIAZIDE (HYDROCHLOROTHIAZIDE) [Concomitant]
  7. CARDURA (DOXAZOSIN MESILATE) [Concomitant]
  8. ASPIRIN (ACETYLSALICYLIC ACID) [Concomitant]

REACTIONS (2)
  - Bladder cancer [None]
  - Intestinal obstruction [None]
